FAERS Safety Report 7255950-8 (Version None)
Quarter: 2011Q1

REPORT INFORMATION
  Report Type: 
  Country: None (occurrence: None)
  Receive Date: 20110129
  Receipt Date: 20100602
  Transmission Date: 20110831
  Serious: No
  Sender: FDA-Public Use
  Company Number: US-ABBOTT-10P-163-0648598-00

PATIENT
  Age: 67 Year
  Sex: Female

DRUGS (11)
  1. ASA [Concomitant]
     Indication: PRODUCT USED FOR UNKNOWN INDICATION
  2. CLARINEX [Concomitant]
     Indication: PRODUCT USED FOR UNKNOWN INDICATION
  3. ATENOLOL [Concomitant]
     Indication: PRODUCT USED FOR UNKNOWN INDICATION
  4. HUMIRA [Suspect]
     Indication: RHEUMATOID ARTHRITIS
     Dates: start: 20100517, end: 20100530
  5. MTX [Concomitant]
     Indication: PRODUCT USED FOR UNKNOWN INDICATION
  6. INDAPAMIDE [Concomitant]
     Indication: PRODUCT USED FOR UNKNOWN INDICATION
  7. PROTONIX [Concomitant]
     Indication: PRODUCT USED FOR UNKNOWN INDICATION
  8. FOLIC ACID [Concomitant]
     Indication: PRODUCT USED FOR UNKNOWN INDICATION
  9. IRON [Concomitant]
     Indication: PRODUCT USED FOR UNKNOWN INDICATION
  10. CELEBREX [Concomitant]
     Indication: PRODUCT USED FOR UNKNOWN INDICATION
  11. VIT C [Concomitant]
     Indication: PRODUCT USED FOR UNKNOWN INDICATION

REACTIONS (4)
  - RESPIRATORY TRACT CONGESTION [None]
  - UPPER-AIRWAY COUGH SYNDROME [None]
  - PRODUCTIVE COUGH [None]
  - SPUTUM DISCOLOURED [None]
